FAERS Safety Report 12389853 (Version 3)
Quarter: 2016Q4

REPORT INFORMATION
  Report Type: Spontaneous
  Country: IE (occurrence: IE)
  Receive Date: 20160520
  Receipt Date: 20161229
  Transmission Date: 20170207
  Serious: Yes (Death, Hospitalization, Other)
  Sender: FDA-Public Use
  Company Number: IE-FRI-1000071177

PATIENT
  Age: 63 Year
  Sex: Female

DRUGS (14)
  1. LEXAPRO [Suspect]
     Active Substance: ESCITALOPRAM OXALATE
     Indication: DEPRESSION
     Dosage: UNK
     Route: 048
     Dates: start: 201402, end: 201407
  2. SERTRALINE [Suspect]
     Active Substance: SERTRALINE HYDROCHLORIDE
     Dosage: 50 MG, UNK
     Route: 065
     Dates: start: 20140903, end: 20140908
  3. ZISPIN [Suspect]
     Active Substance: MIRTAZAPINE
     Indication: PRODUCT USED FOR UNKNOWN INDICATION
     Dosage: 30 MG, UNK
     Route: 065
     Dates: start: 20140712, end: 20140902
  4. SERTRALINE [Suspect]
     Active Substance: SERTRALINE HYDROCHLORIDE
     Dosage: 100 MG
     Route: 065
     Dates: start: 20140714
  5. SOLPADEINE [Concomitant]
     Indication: HEADACHE
  6. DIAZEPAM. [Concomitant]
     Active Substance: DIAZEPAM
     Indication: PRODUCT USED FOR UNKNOWN INDICATION
     Dosage: UNK
     Dates: start: 20140713, end: 20140818
  7. ZISPIN [Suspect]
     Active Substance: MIRTAZAPINE
     Dosage: 30 MG, UNK
     Route: 065
     Dates: start: 20140903, end: 20140914
  8. SERTRALINE [Suspect]
     Active Substance: SERTRALINE HYDROCHLORIDE
     Indication: PRODUCT USED FOR UNKNOWN INDICATION
     Dosage: 100 MG, UNK
     Route: 065
     Dates: start: 20140717, end: 20140902
  9. TEMAZEPAM. [Concomitant]
     Active Substance: TEMAZEPAM
     Indication: PRODUCT USED FOR UNKNOWN INDICATION
     Dosage: 20 MG, UNK
     Route: 065
  10. SERTRALINE [Suspect]
     Active Substance: SERTRALINE HYDROCHLORIDE
     Dosage: 50 MG, UNK
     Route: 065
     Dates: start: 20140715, end: 20140717
  11. DIAZEPAM. [Concomitant]
     Active Substance: DIAZEPAM
     Dosage: UNK
     Dates: start: 20140903
  12. PARACETAMOL [Concomitant]
     Active Substance: ACETAMINOPHEN
     Indication: HEADACHE
  13. SOLPADEINE [Concomitant]
     Indication: MIGRAINE
  14. SUDAFED [Concomitant]
     Active Substance: PSEUDOEPHEDRINE HYDROCHLORIDE
     Indication: PRODUCT USED FOR UNKNOWN INDICATION
     Route: 065

REACTIONS (18)
  - Fear of death [Unknown]
  - Completed suicide [Fatal]
  - Electrocardiogram abnormal [Unknown]
  - Psychotic disorder [Unknown]
  - Contusion [Unknown]
  - Head injury [Unknown]
  - Hyponatraemia [Unknown]
  - Fall [Unknown]
  - Electrocardiogram ST segment elevation [Unknown]
  - Withdrawal syndrome [Fatal]
  - Altered state of consciousness [Unknown]
  - Hepatic enzyme abnormal [Unknown]
  - Coagulopathy [Unknown]
  - Negative thoughts [Unknown]
  - Fear [Unknown]
  - Panic reaction [Unknown]
  - Haemorrhage [Unknown]
  - Blood test abnormal [Unknown]

NARRATIVE: CASE EVENT DATE: 20140712
